FAERS Safety Report 5130814-4 (Version None)
Quarter: 2006Q4

REPORT INFORMATION
  Report Type: 
  Country: None (occurrence: None)
  Receive Date: 20061017
  Receipt Date: 20061017
  Transmission Date: 20070319
  Serious: Yes (Hospitalization)
  Sender: FDA-Public Use
  Company Number: None

PATIENT
  Age: 54 Year
  Sex: Male
  Weight: 103.4201 kg

DRUGS (1)
  1. LISINOPRIL [Suspect]
     Indication: HYPERTENSION
     Dosage: 40MG PO DAILY
     Route: 048
     Dates: start: 20040415, end: 20060603

REACTIONS (3)
  - ANGIONEUROTIC OEDEMA [None]
  - DYSPHAGIA [None]
  - FEELING ABNORMAL [None]
